FAERS Safety Report 8539259-8 (Version None)
Quarter: 2012Q3

REPORT INFORMATION
  Report Type: 
  Country: None (occurrence: None)
  Receive Date: 20120726
  Receipt Date: 20120718
  Transmission Date: 20120928
  Serious: Yes (Other)
  Sender: FDA-Public Use
  Company Number: BR-VERTEX PHARMACEUTICALS INC.-000000000000001077

PATIENT
  Sex: Female
  Weight: 68 kg

DRUGS (3)
  1. RIBAVIRIN [Concomitant]
     Indication: HEPATITIS C
     Dosage: DOSAGE FORM: UNKNOWN
     Route: 065
     Dates: start: 20120606, end: 20120703
  2. INCIVO [Suspect]
     Indication: HEPATITIS C
     Dosage: DOSAGE FORM: TABLET
     Route: 048
     Dates: start: 20120606, end: 20120703
  3. PEG-INTRON [Concomitant]
     Indication: HEPATITIS C
     Dosage: DOSAGE FORM: UNKNOWN
     Route: 065
     Dates: start: 20120606, end: 20120703

REACTIONS (12)
  - ANAEMIA [None]
  - SKIN INJURY [None]
  - OEDEMA PERIPHERAL [None]
  - HYPOALBUMINAEMIA [None]
  - LEUKOPENIA [None]
  - NEUTROPENIA [None]
  - COAGULOPATHY [None]
  - HYPERBILIRUBINAEMIA [None]
  - TRANSAMINASES INCREASED [None]
  - THROMBOCYTOPENIA [None]
  - GINGIVAL BLEEDING [None]
  - FACE OEDEMA [None]
